FAERS Safety Report 4743893-0 (Version None)
Quarter: 2005Q3

REPORT INFORMATION
  Report Type: 
  Country: None (occurrence: None)
  Receive Date: 20050812
  Receipt Date: 20050701
  Transmission Date: 20060218
  Serious: Yes (Hospitalization)
  Sender: FDA-Public Use
  Company Number: US-MERCK-0507USA00294

PATIENT
  Age: 70 Year
  Sex: Female
  Weight: 69 kg

DRUGS (7)
  1. VIOXX [Suspect]
     Indication: ARTHRITIS
     Route: 048
     Dates: start: 19991201, end: 20020201
  2. CLIMARA [Concomitant]
     Route: 065
  3. ALBUTEROL [Concomitant]
     Route: 065
  4. TOBRAMYCIN SULFATE INJECTION, USP [Concomitant]
     Route: 065
  5. ACETAMINOPHEN AND HYDROCODONE BITARTRATE [Concomitant]
     Route: 065
  6. SMZ-TMP [Concomitant]
     Route: 065
  7. ERYTHROMYCIN [Concomitant]
     Route: 065

REACTIONS (13)
  - ANGINA PECTORIS [None]
  - ASTHMA [None]
  - CORONARY ARTERY DISEASE [None]
  - DYSLIPIDAEMIA [None]
  - DYSPNOEA [None]
  - EYE INFECTION [None]
  - FATIGUE [None]
  - HAEMORRHOIDS [None]
  - HYPERTENSION [None]
  - MYOCARDIAL INFARCTION [None]
  - NEPHROLITHIASIS [None]
  - RHINITIS [None]
  - SICK SINUS SYNDROME [None]
